FAERS Safety Report 8446314-X (Version None)
Quarter: 2012Q2

REPORT INFORMATION
  Report Type: 
  Country: None (occurrence: None)
  Receive Date: 20120618
  Receipt Date: 20120604
  Transmission Date: 20120825
  Serious: Yes (Other)
  Sender: FDA-Public Use
  Company Number: CHPA2012US009929

PATIENT
  Age: 68 Year
  Sex: Female

DRUGS (1)
  1. EXCEDRIN TENSION HEADACHE CAPLETS [Suspect]
     Indication: HEADACHE
     Dosage: 1-2 DF, UNK
     Route: 048
     Dates: end: 20120423

REACTIONS (5)
  - BACK PAIN [None]
  - DYSPNOEA [None]
  - GENERAL PHYSICAL HEALTH DETERIORATION [None]
  - UNDERDOSE [None]
  - CHEST PAIN [None]
